FAERS Safety Report 9150632 (Version 2)
Quarter: 2013Q1

REPORT INFORMATION
  Report Type: Spontaneous
  Country: US (occurrence: None)
  Receive Date: 20130131
  Receipt Date: 20130208
  Transmission Date: 20140127
  Serious: Yes (Hospitalization)
  Sender: FDA-Public Use
  Company Number: 2013-0048

PATIENT
  Age: 79 Year
  Sex: Male

DRUGS (9)
  1. KYPROLIS [Suspect]
     Indication: PLASMA CELL MYELOMA
     Dosage: 11.1429 MG (39 MG, 2 IN 1 WK), INTRAVENOUS
     Route: 042
     Dates: start: 20121203
  2. LOTREL (BENAZEPRIL HYDROCHLORIDE) (BENAZEPRIL HYDROCHLORIDE) [Concomitant]
  3. DIOVAN (VALSARTAN) (VALSARTAN) [Concomitant]
  4. ZOMETA (ZOLEDRONIC ACID) (ZOLEDRONIC ACID) [Concomitant]
  5. PLAVIX (CLOPIDOGREL BISULFATE) (CLOPIDOGREL BISULFATE) [Concomitant]
  6. ASPIRIN (ACETYLSALICYLIC ACID) (ACETYLSALICYLIC ACID) [Concomitant]
  7. LIPITOR (ATORVASTATIN CALCIUM) (ATORVASTATIN CALCIUM) [Concomitant]
  8. VITAMIN D (ERGOCALCIFEROL) (ERGOCALCIFEROL) [Concomitant]
  9. CALCIUM (CALCIUM) (CALCIUM) [Concomitant]

REACTIONS (11)
  - Pyrexia [None]
  - Hyperhidrosis [None]
  - Influenza like illness [None]
  - Haemoglobin decreased [None]
  - Pain [None]
  - Renal failure [None]
  - Pulmonary oedema [None]
  - Pleural effusion [None]
  - Cardiac failure congestive [None]
  - Fluid overload [None]
  - Dialysis [None]
